FAERS Safety Report 12940398 (Version 1)
Quarter: 2016Q4

REPORT INFORMATION
  Report Type: Spontaneous
  Country: GB (occurrence: GB)
  Receive Date: 20161115
  Receipt Date: 20161115
  Transmission Date: 20170207
  Serious: Yes (Other)
  Sender: FDA-Public Use
  Company Number: GB-AUROBINDO-AUR-APL-2016-13739

PATIENT
  Age: 25 Year
  Sex: Female
  Weight: 88.9 kg

DRUGS (2)
  1. CEFALEXIN 500 MG [Suspect]
     Active Substance: CEPHALEXIN
     Indication: URINARY TRACT INFECTION
     Dosage: 500 MG, UNK
     Route: 048
     Dates: start: 20161012, end: 20161018
  2. AMOXICILLIN. [Concomitant]
     Active Substance: AMOXICILLIN
     Indication: URINARY TRACT INFECTION
     Route: 065

REACTIONS (5)
  - Vulvovaginal pain [Unknown]
  - Vulvovaginal dryness [Recovering/Resolving]
  - Skin exfoliation [Recovering/Resolving]
  - Vaginal mucosal blistering [Recovering/Resolving]
  - Vulvovaginal burning sensation [Recovering/Resolving]

NARRATIVE: CASE EVENT DATE: 20161014
